FAERS Safety Report 4661978-4 (Version None)
Quarter: 2005Q2

REPORT INFORMATION
  Report Type: 
  Country: None (occurrence: None)
  Receive Date: 20050512
  Receipt Date: 20050512
  Transmission Date: 20051028
  Serious: No
  Sender: FDA-Public Use
  Company Number: None

PATIENT

DRUGS (2)
  1. ANCEF [Suspect]
     Dosage: ANCEF    1 GRAM
  2. CARDIZEM [Suspect]
     Dosage: CARDIZEM     50MG/ML

REACTIONS (2)
  - DRUG DISPENSING ERROR [None]
  - MEDICATION ERROR [None]
